FAERS Safety Report 4622614-6 (Version None)
Quarter: 2005Q1

REPORT INFORMATION
  Report Type: 
  Country: None (occurrence: None)
  Receive Date: 20050330
  Receipt Date: 20050315
  Transmission Date: 20050727
  Serious: Yes (Death, Hospitalization)
  Sender: FDA-Public Use
  Company Number: US-GLAXOSMITHKLINE-A0549823A

PATIENT
  Age: 62 Year
  Sex: Male
  Weight: 90 kg

DRUGS (1)
  1. NICODERM CQ [Suspect]
     Indication: SMOKING CESSATION THERAPY
     Route: 062
     Dates: start: 19990101, end: 20010101

REACTIONS (5)
  - BACK PAIN [None]
  - BONE NEOPLASM MALIGNANT [None]
  - COUGH [None]
  - LUNG NEOPLASM MALIGNANT [None]
  - PULMONARY OEDEMA [None]
